FAERS Safety Report 7630736-0 (Version None)
Quarter: 2011Q3

REPORT INFORMATION
  Report Type: 
  Country: None (occurrence: None)
  Receive Date: 20110722
  Receipt Date: 20110719
  Transmission Date: 20111222
  Serious: Yes (Hospitalization)
  Sender: FDA-Public Use
  Company Number: FR-MERCK-1107FRA00084

PATIENT
  Age: 74 Year
  Sex: Female

DRUGS (10)
  1. FERROUS SULFATE [Concomitant]
     Route: 065
  2. FLUOROURACIL [Suspect]
     Indication: COLORECTAL CANCER
     Route: 042
     Dates: start: 20100701, end: 20101118
  3. FOLINIC ACID [Concomitant]
     Route: 065
  4. OXALIPLATIN [Suspect]
     Indication: COLORECTAL CANCER
     Route: 042
     Dates: start: 20100701, end: 20101118
  5. ZETIA [Suspect]
     Indication: HYPERLIPIDAEMIA
     Route: 048
  6. ZETIA [Suspect]
     Route: 048
     Dates: end: 20101211
  7. PERINDOPRIL [Suspect]
     Indication: HYPERTENSION
     Route: 048
     Dates: end: 20101211
  8. SOTALOL HYDROCHLORIDE [Suspect]
     Indication: ATRIAL FIBRILLATION
     Route: 048
     Dates: end: 20101211
  9. EPOETIN BETA [Concomitant]
     Route: 065
  10. METFORMIN [Suspect]
     Indication: TYPE 2 DIABETES MELLITUS
     Route: 048
     Dates: end: 20101211

REACTIONS (1)
  - RENAL FAILURE ACUTE [None]
